FAERS Safety Report 8086852-5 (Version None)
Quarter: 2012Q1

REPORT INFORMATION
  Report Type: 
  Country: None (occurrence: None)
  Receive Date: 20120128
  Receipt Date: 20110519
  Transmission Date: 20120608
  Serious: No
  Sender: FDA-Public Use
  Company Number: US-ABBOTT-11P-163-0727082-00

PATIENT
  Age: 58 Year
  Sex: Male

DRUGS (6)
  1. HUMIRA [Suspect]
     Indication: PSORIASIS
     Dosage: OF LOADING DOSE
     Dates: start: 20110519
  2. PRAZOSIN HCL [Concomitant]
     Indication: HYPERTENSION
  3. CLOBETASOL [Concomitant]
     Indication: PSORIASIS
  4. LISINOPRIL [Concomitant]
     Indication: HYPERTENSION
  5. TRIAMCINOLONE [Concomitant]
     Indication: PSORIASIS
     Dosage: 2-3 TIMES DAILY
  6. ATENOLOL [Concomitant]
     Indication: HYPERTENSION

REACTIONS (1)
  - INJECTION SITE PAIN [None]
